FAERS Safety Report 23076146 (Version 1)
Quarter: 2023Q4

REPORT INFORMATION
  Report Type: Spontaneous
  Country: JP (occurrence: JP)
  Receive Date: 20231017
  Receipt Date: 20231017
  Transmission Date: 20240110
  Serious: Yes (Other)
  Sender: FDA-Public Use
  Company Number: JP-DSJP-DSJ-2023-142004

PATIENT
  Age: 78 Year
  Sex: Male
  Weight: 41.6 kg

DRUGS (11)
  1. EDOXABAN TOSYLATE [Suspect]
     Active Substance: EDOXABAN TOSYLATE
     Indication: Deep vein thrombosis
     Dosage: 30MG/DAY
     Route: 048
  2. HYDROMORPHONE HYDROCHLORIDE [Concomitant]
     Active Substance: HYDROMORPHONE HYDROCHLORIDE
     Indication: Pain
     Dosage: 2 MG, QD, AT 20:00
     Route: 048
  3. HYDROMORPHONE HYDROCHLORIDE [Concomitant]
     Active Substance: HYDROMORPHONE HYDROCHLORIDE
     Indication: Cough
     Dosage: 1 MG, AS NEEDED
     Route: 048
  4. HYDROMORPHONE HYDROCHLORIDE [Concomitant]
     Active Substance: HYDROMORPHONE HYDROCHLORIDE
     Indication: Antitussive therapy
     Dosage: 2 MG, QD, AT 20:00
     Route: 048
  5. CELECOXIB [Concomitant]
     Active Substance: CELECOXIB
     Dosage: 200MG/DAY
     Route: 048
  6. LUBIPROSTONE [Concomitant]
     Active Substance: LUBIPROSTONE
     Dosage: 48UG/DAY
     Route: 048
  7. MAGNESIUM OXIDE [Concomitant]
     Active Substance: MAGNESIUM OXIDE
     Dosage: 990MG/DAY
     Route: 048
  8. NALDEMEDINE TOSYLATE [Concomitant]
     Active Substance: NALDEMEDINE TOSYLATE
     Indication: Constipation
     Dosage: 0.2MG/DAY
     Route: 048
  9. FUROSEMIDE [Concomitant]
     Active Substance: FUROSEMIDE
     Indication: Pleural effusion
     Dosage: 20MG/DAY
     Route: 048
  10. FUROSEMIDE [Concomitant]
     Active Substance: FUROSEMIDE
     Indication: Pulmonary congestion
  11. AMINO ACIDS\CARBOHYDRATES\ELECTROLYTES NOS\VITAMINS [Concomitant]
     Active Substance: AMINO ACIDS\CARBOHYDRATES\ELECTROLYTES NOS\VITAMINS
     Dosage: 1000ML/DAY
     Route: 042

REACTIONS (1)
  - Cholangitis [Unknown]
